FAERS Safety Report 4771311-5 (Version None)
Quarter: 2005Q3

REPORT INFORMATION
  Report Type: 
  Country: None (occurrence: None)
  Receive Date: 20050915
  Receipt Date: 20050526
  Transmission Date: 20060218
  Serious: Yes (Hospitalization, Disabling)
  Sender: FDA-Public Use
  Company Number: US-MERCK-0505USA03223

PATIENT
  Age: 53 Year
  Sex: Male
  Weight: 84 kg

DRUGS (13)
  1. VIOXX [Suspect]
     Indication: ARTHRALGIA
     Route: 048
     Dates: start: 20011124, end: 20020831
  2. VIOXX [Suspect]
     Route: 048
  3. VIOXX [Suspect]
     Indication: BACK PAIN
     Route: 048
     Dates: start: 20011124, end: 20020831
  4. VIOXX [Suspect]
     Route: 048
  5. AMBIEN [Concomitant]
     Route: 065
  6. KLOR-CON [Concomitant]
     Route: 065
     Dates: end: 20010901
  7. ATENOLOL [Concomitant]
     Route: 065
  8. LASIX [Concomitant]
     Route: 065
     Dates: start: 20000901, end: 20020624
  9. PAXIL [Concomitant]
     Route: 065
  10. TAMIFLU [Concomitant]
     Route: 065
  11. AMITRIPTYLINE HYDROCHLORIDE [Concomitant]
     Route: 065
  12. PROTONIX [Concomitant]
     Route: 065
  13. ASPIRIN [Concomitant]
     Route: 065
     Dates: start: 19980714

REACTIONS (7)
  - ANHEDONIA [None]
  - CARDIOVASCULAR DISORDER [None]
  - HYPERTENSION [None]
  - MYOCARDIAL INFARCTION [None]
  - NEPHROLITHIASIS [None]
  - PAIN [None]
  - SLEEP APNOEA SYNDROME [None]
